FAERS Safety Report 24005210 (Version 2)
Quarter: 2024Q3

REPORT INFORMATION
  Report Type: Spontaneous
  Country: CA (occurrence: CA)
  Receive Date: 20240624
  Receipt Date: 20240809
  Transmission Date: 20241017
  Serious: Yes (Other)
  Sender: Vantive US Healthcare
  Company Number: CA-VANTIVE-2024VAN017845

PATIENT
  Age: 62 Year
  Sex: Female
  Weight: 56.24 kg

DRUGS (1)
  1. CALCIUM CL\DEXTROSE\MAGNESIUM CL\SODIUM BICAR\SODIUM CL\SODIUM LACT [Suspect]
     Active Substance: CALCIUM CHLORIDE\DEXTROSE MONOHYDRATE\MAGNESIUM CHLORIDE\SODIUM BICARBONATE\SODIUM CHLORIDE\SODIUM L
     Route: 033

REACTIONS (5)
  - Peritonitis [Unknown]
  - Abdominal pain upper [Not Recovered/Not Resolved]
  - Poor quality product administered [Unknown]
  - Stress [Unknown]
  - Pain [Unknown]

NARRATIVE: CASE EVENT DATE: 20240405
